FAERS Safety Report 4855987-X (Version None)
Quarter: 2005Q4

REPORT INFORMATION
  Report Type: 
  Country: None (occurrence: None)
  Receive Date: 20051216
  Receipt Date: 20051207
  Transmission Date: 20060501
  Serious: Yes (Hospitalization)
  Sender: FDA-Public Use
  Company Number: FR-JNJFOC-20051201973

PATIENT
  Age: 71 Year
  Sex: Female

DRUGS (1)
  1. HALDOL DECANOAS [Suspect]
     Route: 030

REACTIONS (3)
  - ANAEMIA [None]
  - ASTHENIA [None]
  - HYPONATRAEMIA [None]
